FAERS Safety Report 6555980-5 (Version None)
Quarter: 2010Q1

REPORT INFORMATION
  Report Type: 
  Country: None (occurrence: None)
  Receive Date: 20100128
  Receipt Date: 20090302
  Transmission Date: 20100710
  Serious: No
  Sender: FDA-Public Use
  Company Number: US-TEVA-181649USA

PATIENT
  Sex: Female

DRUGS (6)
  1. COPAXONE [Suspect]
     Indication: MULTIPLE SCLEROSIS
     Route: 058
     Dates: start: 20040608
  2. METHYLPHENIDATE HCL [Concomitant]
  3. FLUOXETINE HYDROCHLORIDE [Concomitant]
  4. VENLAFAXINE [Concomitant]
  5. BACLOFEN [Concomitant]
  6. IBUPROFEN [Concomitant]

REACTIONS (3)
  - COUGH [None]
  - PLEURAL EFFUSION [None]
  - PULMONARY MASS [None]
